FAERS Safety Report 19416314 (Version 6)
Quarter: 2025Q3

REPORT INFORMATION
  Report Type: Spontaneous
  Country: US (occurrence: US)
  Receive Date: 20210615
  Receipt Date: 20250806
  Transmission Date: 20251020
  Serious: Yes (Other)
  Sender: AMGEN
  Company Number: US-AMGEN-USASP2021088021

PATIENT
  Age: 64 Year
  Sex: Male

DRUGS (31)
  1. OTEZLA [Suspect]
     Active Substance: APREMILAST
     Indication: Psoriasis
     Dosage: 30 MILLIGRAM, BID
     Route: 048
     Dates: start: 20200815
  2. DROXIDOPA [Concomitant]
     Active Substance: DROXIDOPA
     Route: 065
  3. ALLOPURINOL [Concomitant]
     Active Substance: ALLOPURINOL
  4. ASPIRIN [Concomitant]
     Active Substance: ASPIRIN
  5. ATENOLOL [Concomitant]
     Active Substance: ATENOLOL
  6. CARBIDOPA\LEVODOPA [Concomitant]
     Active Substance: CARBIDOPA\LEVODOPA
  7. CARBIDOPA [Concomitant]
     Active Substance: CARBIDOPA
  8. COLCRYS [Concomitant]
     Active Substance: COLCHICINE
  9. DOXYCYCLINE [Concomitant]
     Active Substance: DOXYCYCLINE
  10. ELIQUIS [Concomitant]
     Active Substance: APIXABAN
  11. ESCITALOPRAM [Concomitant]
     Active Substance: ESCITALOPRAM OXALATE
  12. FLUDROCORTISONE [Concomitant]
     Active Substance: FLUDROCORTISONE
  13. FOLIC ACID [Concomitant]
     Active Substance: FOLIC ACID
  14. GABAPENTIN [Concomitant]
     Active Substance: GABAPENTIN
  15. INVOKAMET [Concomitant]
     Active Substance: CANAGLIFLOZIN\METFORMIN HYDROCHLORIDE
  16. JANUVIA [Concomitant]
     Active Substance: SITAGLIPTIN PHOSPHATE
  17. LEVOTHYROXINE [Concomitant]
     Active Substance: LEVOTHYROXINE
  18. LISINOPRIL [Concomitant]
     Active Substance: LISINOPRIL
  19. LEXAPRO [Concomitant]
     Active Substance: ESCITALOPRAM OXALATE
  20. MEMANTINE [Concomitant]
     Active Substance: MEMANTINE
  21. METOPROLOL [Concomitant]
     Active Substance: METOPROLOL
  22. MIDODRINE [Concomitant]
     Active Substance: MIDODRINE
  23. NITROSTAT [Concomitant]
     Active Substance: NITROGLYCERIN
     Route: 060
  24. OMEPRAZOLE [Concomitant]
     Active Substance: OMEPRAZOLE
  25. ROSUVASTATIN [Concomitant]
     Active Substance: ROSUVASTATIN
  26. SYNJARDY [Concomitant]
     Active Substance: EMPAGLIFLOZIN\METFORMIN HYDROCHLORIDE
  27. TAMSULOSIN [Concomitant]
     Active Substance: TAMSULOSIN
  28. VITAMIN B12 [Concomitant]
     Active Substance: CYANOCOBALAMIN
  29. VITAMIN D3 [Concomitant]
     Active Substance: CHOLECALCIFEROL
  30. ZYRTEC [Concomitant]
     Active Substance: CETIRIZINE HYDROCHLORIDE
  31. NORTHERA [Concomitant]
     Active Substance: DROXIDOPA

REACTIONS (4)
  - Lyme disease [Not Recovered/Not Resolved]
  - Therapy non-responder [Not Recovered/Not Resolved]
  - Psoriasis [Not Recovered/Not Resolved]
  - Sinusitis [Not Recovered/Not Resolved]

NARRATIVE: CASE EVENT DATE: 20210501
